FAERS Safety Report 18729142 (Version 1)
Quarter: 2021Q1

REPORT INFORMATION
  Report Type: Spontaneous
  Country: FR (occurrence: FR)
  Receive Date: 20210112
  Receipt Date: 20210112
  Transmission Date: 20210419
  Serious: Yes (Hospitalization)
  Sender: FDA-Public Use
  Company Number: FR-JNJFOC-20210111126

PATIENT
  Age: 68 Year
  Sex: Male
  Weight: 75 kg

DRUGS (11)
  1. BACTRIM [Concomitant]
     Active Substance: SULFAMETHOXAZOLE\TRIMETHOPRIM
     Route: 048
     Dates: start: 20200415
  2. DOLIPRANE [Concomitant]
     Active Substance: ACETAMINOPHEN
     Dosage: SI BESOIN
     Route: 048
     Dates: start: 20200902
  3. ALLOPURINOL. [Concomitant]
     Active Substance: ALLOPURINOL
     Route: 048
     Dates: start: 20181206
  4. INNOHEP [Concomitant]
     Active Substance: TINZAPARIN SODIUM
     Route: 058
     Dates: start: 20200226
  5. AMOXICILLINE [Concomitant]
     Active Substance: AMOXICILLIN
     Route: 048
     Dates: start: 20200415
  6. DEXAMETHASONE. [Suspect]
     Active Substance: DEXAMETHASONE
     Indication: PLASMA CELL MYELOMA
     Route: 048
     Dates: start: 20201211
  7. REVLIMID [Suspect]
     Active Substance: LENALIDOMIDE
     Route: 048
     Dates: start: 20201211, end: 20201214
  8. DARZALEX [Suspect]
     Active Substance: DARATUMUMAB
     Indication: PLASMA CELL MYELOMA
     Route: 042
     Dates: start: 20201211
  9. VALACICLOVIR [Concomitant]
     Active Substance: VALACYCLOVIR HYDROCHLORIDE
     Indication: INFECTION
     Route: 048
     Dates: start: 20200415
  10. RETACRIT [Concomitant]
     Active Substance: EPOETIN ALFA-EPBX
     Route: 058
     Dates: start: 20200513
  11. MOPRAL [Concomitant]
     Active Substance: OMEPRAZOLE
     Dosage: MERCREDI ET JEUDI
     Route: 048
     Dates: start: 20200415

REACTIONS (2)
  - Hyperthermia [Recovered/Resolved]
  - Vomiting [Recovered/Resolved]

NARRATIVE: CASE EVENT DATE: 20201213
